FAERS Safety Report 12797217 (Version 2)
Quarter: 2019Q1

REPORT INFORMATION
  Report Type: Spontaneous
  Country: US (occurrence: US)
  Receive Date: 20160929
  Receipt Date: 20190326
  Transmission Date: 20190417
  Serious: Yes (Death, Other)
  Sender: FDA-Public Use
  Company Number: US-009507513-1609USA014076

PATIENT
  Sex: Male
  Weight: 105.67 kg

DRUGS (1)
  1. JANUMET [Suspect]
     Active Substance: METFORMIN HYDROCHLORIDE\SITAGLIPTIN PHOSPHATE
     Indication: TYPE 2 DIABETES MELLITUS
     Dosage: 50-1000MG, TWICE DAILY
     Route: 048
     Dates: start: 20071127, end: 20131223

REACTIONS (10)
  - Scar [Unknown]
  - Polyp [Unknown]
  - Dyspepsia [Unknown]
  - Adenocarcinoma [Unknown]
  - Pancreatic carcinoma [Unknown]
  - Metastases to liver [Unknown]
  - Cardiac murmur [Unknown]
  - Small cell carcinoma [Unknown]
  - Dysphagia [Unknown]
  - Death [Fatal]

NARRATIVE: CASE EVENT DATE: 200806
